FAERS Safety Report 10440256 (Version 1)
Quarter: 2014Q3

REPORT INFORMATION
  Report Type: Spontaneous
  Country: US (occurrence: US)
  Receive Date: 20140908
  Receipt Date: 20140908
  Transmission Date: 20150326
  Serious: No
  Sender: FDA-Public Use
  Company Number: US-BRISTOL-MYERS SQUIBB COMPANY-20700969

PATIENT
  Sex: Male

DRUGS (3)
  1. LAMICTAL [Concomitant]
     Active Substance: LAMOTRIGINE
  2. FLUNISOLIDE. [Concomitant]
     Active Substance: FLUNISOLIDE
  3. ABILIFY [Suspect]
     Active Substance: ARIPIPRAZOLE
     Dosage: DOSE REDUCED TO 10MG
     Route: 048

REACTIONS (2)
  - Dyskinesia [Not Recovered/Not Resolved]
  - Sleep disorder [Not Recovered/Not Resolved]
